FAERS Safety Report 8773483 (Version 1)
Quarter: 2012Q4

REPORT INFORMATION
  Report Type: 
  Country: IE (occurrence: IE)
  Receive Date: 20120907
  Receipt Date: 20120907
  Transmission Date: 20130627
  Serious: Yes (Death, Other)
  Sender: FDA-Public Use
  Company Number: PHHY2012IE076962

PATIENT

DRUGS (11)
  1. CICLOSPORIN [Suspect]
     Indication: PROPHYLAXIS AGAINST GRAFT VERSUS HOST DISEASE
  2. PREDNISOLONE [Suspect]
     Indication: PROPHYLAXIS AGAINST GRAFT VERSUS HOST DISEASE
  3. CYCLOPHOSPHAMIDE [Concomitant]
  4. BUSULPHAN [Concomitant]
  5. MELPHALAN [Concomitant]
  6. URSODEOXYCHOLIC ACID [Concomitant]
  7. CO-TRIMOXAZOLE [Concomitant]
  8. ACICLOVIR [Concomitant]
  9. VORICONAZOLE [Concomitant]
  10. AMPHOTERICIN B LIPID COMPLEX [Concomitant]
  11. ANTIBIOTICS [Concomitant]

REACTIONS (3)
  - Juvenile chronic myelomonocytic leukaemia [Fatal]
  - Graft versus host disease in skin [Unknown]
  - Neoplasm recurrence [None]
